FAERS Safety Report 13768145 (Version 1)
Quarter: 2017Q3

REPORT INFORMATION
  Report Type: Spontaneous
  Country: US (occurrence: US)
  Receive Date: 20170719
  Receipt Date: 20170719
  Transmission Date: 20171127
  Serious: Yes (Other)
  Sender: FDA-Public Use
  Company Number: PHEH2017US021701

PATIENT
  Age: 56 Year
  Sex: Female

DRUGS (1)
  1. ARGATROBAN. [Suspect]
     Active Substance: ARGATROBAN
     Indication: PULMONARY EMBOLISM
     Dosage: UNK
     Route: 065

REACTIONS (7)
  - Pulmonary embolism [Unknown]
  - Pyrexia [Unknown]
  - Treatment failure [Unknown]
  - Hypotension [Unknown]
  - Septic shock [Unknown]
  - Tachycardia [Unknown]
  - Thrombosis [Unknown]
